FAERS Safety Report 21243751 (Version 1)
Quarter: 2022Q3

REPORT INFORMATION
  Report Type: Spontaneous
  Country: JP (occurrence: JP)
  Receive Date: 20220823
  Receipt Date: 20220823
  Transmission Date: 20221027
  Serious: No
  Sender: FDA-Public Use
  Company Number: JP-PFIZER INC-PV202200046343

PATIENT
  Age: 83 Year
  Sex: Male

DRUGS (2)
  1. PAXLOVID [Suspect]
     Active Substance: NIRMATRELVIR\RITONAVIR
     Indication: COVID-19 treatment
     Dosage: NIRMATRELVIR 600/RITONAVIR 200, DAILY
     Route: 048
     Dates: start: 20220818
  2. ESTAZOLAM [Suspect]
     Active Substance: ESTAZOLAM
     Dosage: UNK UNK, 3X/DAY
     Route: 048
     Dates: end: 20220818

REACTIONS (1)
  - Contraindicated product administered [Unknown]

NARRATIVE: CASE EVENT DATE: 20220818
